FAERS Safety Report 20471060 (Version 2)
Quarter: 2022Q1

REPORT INFORMATION
  Report Type: Spontaneous
  Country: US (occurrence: US)
  Receive Date: 20220214
  Receipt Date: 20220223
  Transmission Date: 20220423
  Serious: Yes (Hospitalization)
  Sender: FDA-Public Use
  Company Number: US-VERTEX PHARMACEUTICALS-2022-001308

PATIENT
  Age: 41 Year
  Sex: Male
  Weight: 76 kg

DRUGS (32)
  1. TRIKAFTA [Suspect]
     Active Substance: ELEXACAFTOR\IVACAFTOR\TEZACAFTOR
     Indication: Cystic fibrosis
     Dosage: 2 ORANGS TABS IN THE AM AND 1 BLUE TAB IN THE PM, BID
     Route: 048
     Dates: start: 20200113
  2. AZTREONAM LYSINE [Suspect]
     Active Substance: AZTREONAM LYSINE
     Indication: Cystic fibrosis
     Dosage: UNK
  3. CAYSTON [Concomitant]
     Active Substance: AZTREONAM
  4. COLISTIMETHATE SODIUM [Concomitant]
     Active Substance: COLISTIMETHATE SODIUM
  5. CREON [Concomitant]
     Active Substance: PANCRELIPASE AMYLASE\PANCRELIPASE LIPASE\PANCRELIPASE PROTEASE
  6. PULMOZYME [Concomitant]
     Active Substance: DORNASE ALFA
  7. VITAMIN A [RETINOL PALMITATE] [Concomitant]
  8. VITAMIN D2 [Concomitant]
     Active Substance: ERGOCALCIFEROL
  9. FAMOTIDINE [Concomitant]
     Active Substance: FAMOTIDINE
  10. VITAMIN E [Concomitant]
     Active Substance: .ALPHA.-TOCOPHEROL
  11. TOBI PODHALER [Concomitant]
     Active Substance: TOBRAMYCIN
  12. LISINOPRIL [Concomitant]
     Active Substance: LISINOPRIL
  13. HUMALOG [Concomitant]
     Active Substance: INSULIN LISPRO
  14. ADDERALL [Concomitant]
     Active Substance: AMPHETAMINE ASPARTATE\AMPHETAMINE SULFATE\DEXTROAMPHETAMINE SACCHARATE\DEXTROAMPHETAMINE SULFATE
  15. ZOLPIDEM TARTRATE [Concomitant]
     Active Substance: ZOLPIDEM TARTRATE
  16. KETOCONAZOLE [Concomitant]
     Active Substance: KETOCONAZOLE
  17. FLUOCINONIDE [Concomitant]
     Active Substance: FLUOCINONIDE
  18. POLYETHYLENE GLYCOLS [Concomitant]
     Active Substance: POLYETHYLENE GLYCOLS
  19. ALBUTEROL SULFATE [Concomitant]
     Active Substance: ALBUTEROL SULFATE
  20. SODIUM CHLORIDE [Concomitant]
     Active Substance: SODIUM CHLORIDE
  21. ALPRAZOLAM [Concomitant]
     Active Substance: ALPRAZOLAM
  22. PANTOPRAZOLE SODIUM [Concomitant]
     Active Substance: PANTOPRAZOLE SODIUM
  23. FLUTICASONE PROPIONATE [Concomitant]
     Active Substance: FLUTICASONE PROPIONATE
  24. PROAIR HFA [Concomitant]
     Active Substance: ALBUTEROL SULFATE
  25. AZITHROMYCIN [Concomitant]
     Active Substance: AZITHROMYCIN
  26. BACLOFEN [Concomitant]
     Active Substance: BACLOFEN
  27. LACTINEX [LACTOBACILLUS ACIDOPHILUS;LACTOBACILLUS BULGARICUS] [Concomitant]
  28. LANTUS [Concomitant]
     Active Substance: INSULIN GLARGINE
  29. MELATONIN [Concomitant]
     Active Substance: MELATONIN
  30. ZOFRAN [ONDANSETRON HYDROCHLORIDE DIHYDRATE] [Concomitant]
  31. LAMOTRIGINE [Concomitant]
     Active Substance: LAMOTRIGINE
  32. VIIBRYD [Concomitant]
     Active Substance: VILAZODONE HYDROCHLORIDE

REACTIONS (4)
  - Weight decreased [Recovered/Resolved]
  - Withdrawal syndrome [Recovered/Resolved]
  - Product distribution issue [Recovered/Resolved]
  - Product dose omission issue [Recovered/Resolved]

NARRATIVE: CASE EVENT DATE: 20211004
